FAERS Safety Report 4271293-9 (Version None)
Quarter: 2004Q1

REPORT INFORMATION
  Report Type: 
  Country: None (occurrence: None)
  Receive Date: 20040113
  Receipt Date: 20031229
  Transmission Date: 20041129
  Serious: Yes (Death, Hospitalization, Other)
  Sender: FDA-Public Use
  Company Number: 03-374-0768

PATIENT
  Age: 75 Year
  Sex: Male
  Weight: 98 kg

DRUGS (1)
  1. DAUNORUBICIN HCL [Suspect]
     Indication: ACUTE MYELOID LEUKAEMIA
     Dosage: 45 MG/M2 IV DAYS 1,3
     Route: 042
     Dates: start: 20031120, end: 20031212

REACTIONS (4)
  - FEBRILE NEUTROPENIA [None]
  - INFECTION [None]
  - PNEUMONITIS [None]
  - RESPIRATORY ARREST [None]
